FAERS Safety Report 4411753-0 (Version None)
Quarter: 2004Q3

REPORT INFORMATION
  Report Type: 
  Country: None (occurrence: None)
  Receive Date: 20040728
  Receipt Date: 20040712
  Transmission Date: 20050211
  Serious: Yes (Hospitalization)
  Sender: FDA-Public Use
  Company Number: US_0406103940

PATIENT
  Age: 26 Week
  Sex: Male
  Weight: 66 kg

DRUGS (1)
  1. KEFLEX [Suspect]
     Indication: URINARY TRACT INFECTION
     Dosage: 6 MG DAY
     Dates: start: 20040413, end: 20040422

REACTIONS (11)
  - BLOOD URINE [None]
  - CULTURE URINE POSITIVE [None]
  - DRUG INEFFECTIVE [None]
  - ESCHERICHIA INFECTION [None]
  - GASTROINTESTINAL DISORDER [None]
  - IMMUNODEFICIENCY [None]
  - NITRITE URINE PRESENT [None]
  - RED BLOOD CELLS URINE [None]
  - URINE ANALYSIS ABNORMAL [None]
  - VOMITING [None]
  - WHITE BLOOD CELL DISORDER [None]
